FAERS Safety Report 26098286 (Version 1)
Quarter: 2025Q4

REPORT INFORMATION
  Report Type: Spontaneous
  Country: MY (occurrence: MY)
  Receive Date: 20251127
  Receipt Date: 20251127
  Transmission Date: 20260119
  Serious: Yes (Life-Threatening, Hospitalization)
  Sender: GLAXOSMITHKLINE
  Company Number: MY-GSK-MY2025APC151025

PATIENT
  Age: 8 Year
  Sex: Male

DRUGS (3)
  1. VENTOLIN [Suspect]
     Active Substance: ALBUTEROL SULFATE
     Indication: Asthma
     Dosage: UNK
  2. FLUTICASONE PROPIONATE [Suspect]
     Active Substance: FLUTICASONE PROPIONATE
     Indication: Asthma
     Dosage: 125 UG, QD
  3. SERETIDE [Suspect]
     Active Substance: FLUTICASONE PROPIONATE\SALMETEROL XINAFOATE
     Indication: Asthma
     Dosage: 2 PUFF(S), BID (25/125)

REACTIONS (10)
  - Asthma [Not Recovered/Not Resolved]
  - Wheezing [Recovered/Resolved]
  - Cough [Recovered/Resolved]
  - Dyspnoea exertional [Not Recovered/Not Resolved]
  - Tachypnoea [Recovered/Resolved]
  - Somnolence [Unknown]
  - Dyspnoea [Unknown]
  - Respiratory tract infection [Unknown]
  - Respiratory symptom [Unknown]
  - Product dose omission issue [Unknown]
